FAERS Safety Report 8523630-4 (Version None)
Quarter: 2012Q3

REPORT INFORMATION
  Report Type: 
  Country: None (occurrence: None)
  Receive Date: 20120720
  Receipt Date: 20120710
  Transmission Date: 20120928
  Serious: Yes (Other)
  Sender: FDA-Public Use
  Company Number: BR-NOVOPROD-341291

PATIENT
  Age: 54 Year
  Sex: Female
  Weight: 77.9 kg

DRUGS (7)
  1. FLUOXETINE HCL [Concomitant]
     Dosage: 20 MG, QD
     Dates: start: 20110401, end: 20111212
  2. VICTOZA [Suspect]
     Dosage: 2.4 MG, QD
     Route: 058
     Dates: start: 20110830, end: 20110905
  3. VICTOZA [Suspect]
     Indication: OBESITY
     Dosage: 0.6 MG, QD
     Route: 058
     Dates: start: 20110816, end: 20110822
  4. VICTOZA [Suspect]
     Dosage: 1.2 MG, QD
     Route: 058
     Dates: start: 20110823, end: 20110829
  5. VICTOZA [Suspect]
     Dosage: 3 MG, QD
     Route: 058
     Dates: start: 20110906, end: 20111208
  6. CARISOPRODOL [Concomitant]
     Dosage: 100 MG, QD
     Dates: start: 20110401, end: 20111212
  7. ACETAMINOPHEN [Concomitant]
     Dosage: 200 MG, QD
     Dates: start: 20110401, end: 20111212

REACTIONS (1)
  - HEPATITIS ACUTE [None]
